FAERS Safety Report 13807643 (Version 1)
Quarter: 2017Q3

REPORT INFORMATION
  Report Type: Spontaneous
  Country: IT (occurrence: IT)
  Receive Date: 20170728
  Receipt Date: 20170728
  Transmission Date: 20171127
  Serious: Yes (Hospitalization, Other)
  Sender: FDA-Public Use
  Company Number: IT-APOTEX-2017AP015977

PATIENT
  Age: 42 Year
  Sex: Female

DRUGS (12)
  1. CLOZAPINE. [Suspect]
     Active Substance: CLOZAPINE
     Indication: BORDERLINE PERSONALITY DISORDER
     Dosage: 400 UNK, UNK
     Route: 065
     Dates: start: 201603
  2. VALPROIC ACID. [Suspect]
     Active Substance: VALPROIC ACID
     Indication: PARANOIA
  3. SERTRALINE [Suspect]
     Active Substance: SERTRALINE HYDROCHLORIDE
     Indication: AGITATION
     Dosage: UNK UNK, QD
     Route: 065
     Dates: start: 201508
  4. VALPROIC ACID. [Suspect]
     Active Substance: VALPROIC ACID
     Indication: OBSESSIVE THOUGHTS
     Dosage: UNK UNK, QD
     Route: 065
     Dates: start: 201508
  5. VALPROIC ACID. [Suspect]
     Active Substance: VALPROIC ACID
     Indication: LOGORRHOEA
     Dosage: 800 UNK, UNK
     Route: 065
     Dates: start: 201603
  6. VALPROIC ACID. [Suspect]
     Active Substance: VALPROIC ACID
     Indication: AGITATION
  7. SERTRALINE [Suspect]
     Active Substance: SERTRALINE HYDROCHLORIDE
     Indication: LOGORRHOEA
  8. ZUCLOPENTIXOL [Concomitant]
     Active Substance: ZUCLOPENTHIXOL
     Indication: SCHIZOPHRENIA
     Dosage: 20 MG, UNK
     Route: 065
     Dates: start: 201603
  9. SERTRALINE [Suspect]
     Active Substance: SERTRALINE HYDROCHLORIDE
     Indication: OBSESSIVE THOUGHTS
  10. SERTRALINE [Suspect]
     Active Substance: SERTRALINE HYDROCHLORIDE
     Indication: PARANOIA
     Dosage: 100 UNK, UNK
     Route: 065
     Dates: start: 201603
  11. CLOZAPINE. [Suspect]
     Active Substance: CLOZAPINE
     Indication: SCHIZOPHRENIA
     Dosage: UNK UNK, QD
     Route: 048
     Dates: start: 2007
  12. ZUCLOPENTIXOL [Concomitant]
     Active Substance: ZUCLOPENTHIXOL
     Indication: BORDERLINE PERSONALITY DISORDER
     Dosage: INCREASED DOSE
     Route: 065

REACTIONS (10)
  - Pleural effusion [Recovered/Resolved]
  - Drug interaction [Recovered/Resolved]
  - Chest pain [Recovered/Resolved]
  - Pericardial effusion [Recovered/Resolved]
  - Pyrexia [Recovered/Resolved]
  - Monocytosis [Recovered/Resolved]
  - Red blood cell sedimentation rate increased [Recovered/Resolved]
  - Serositis [Recovered/Resolved]
  - Leukocytosis [Recovered/Resolved]
  - Neutrophilia [Recovered/Resolved]
